FAERS Safety Report 6733964-1 (Version None)
Quarter: 2010Q2

REPORT INFORMATION
  Report Type: 
  Country: None (occurrence: None)
  Receive Date: 20100520
  Receipt Date: 20100510
  Transmission Date: 20101027
  Serious: Yes (Other)
  Sender: FDA-Public Use
  Company Number: US-WYE-H14730410

PATIENT
  Sex: Female
  Weight: 62.6 kg

DRUGS (12)
  1. TORISEL [Suspect]
     Indication: METASTATIC RENAL CELL CARCINOMA
     Route: 042
     Dates: start: 20090911, end: 20100423
  2. DIPHENHYDRAMINE HCL [Concomitant]
     Route: 042
     Dates: start: 20090911
  3. LEVOTHYROXINE SODIUM [Concomitant]
     Indication: HYPOTHYROIDISM
     Route: 048
  4. PANTOPRAZOLE [Concomitant]
     Route: 048
  5. LORAZEPAM [Concomitant]
     Indication: ANXIETY
     Dosage: 1 MG AS NEEDED
     Route: 048
  6. LORAZEPAM [Concomitant]
     Indication: NAUSEA
  7. LORAZEPAM [Concomitant]
     Indication: INSOMNIA
  8. ADVIL LIQUI-GELS [Concomitant]
     Dosage: 400 MG EVERY 4 HOURS AS NEEDED
  9. NORCO [Concomitant]
     Dosage: AS NEEDED
  10. LIPITOR [Concomitant]
     Route: 048
  11. DOLASETRON MESYLATE [Concomitant]
     Indication: NAUSEA
     Route: 042
     Dates: start: 20090911
  12. BUPROPION HYDROCHLORIDE [Concomitant]
     Indication: DEPRESSION
     Dosage: UNKNOWN DOSE TWICE DAILY
     Route: 048

REACTIONS (2)
  - ALVEOLAR OSTEITIS [None]
  - OSTEONECROSIS OF JAW [None]
